FAERS Safety Report 5333189-0 (Version None)
Quarter: 2007Q2

REPORT INFORMATION
  Report Type: 
  Country: None (occurrence: None)
  Receive Date: 20070524
  Receipt Date: 20070511
  Transmission Date: 20071010
  Serious: Yes (Hospitalization)
  Sender: FDA-Public Use
  Company Number: FR-SANOFI-SYNTHELABO-A02200701375

PATIENT
  Age: 15 Year
  Sex: Female
  Weight: 50 kg

DRUGS (3)
  1. ISKEDYL [Suspect]
     Indication: OVERDOSE
     Dosage: UNK
     Route: 048
     Dates: start: 20070511, end: 20070511
  2. TRAMADOL HCL [Suspect]
     Indication: OVERDOSE
     Dosage: 900 MG
     Route: 048
     Dates: start: 20070511, end: 20070511
  3. PLAQUENIL [Suspect]
     Indication: OVERDOSE
     Dosage: UNK
     Route: 048
     Dates: start: 20070511, end: 20070511

REACTIONS (2)
  - INTENTIONAL OVERDOSE [None]
  - SUICIDE ATTEMPT [None]
